FAERS Safety Report 10239615 (Version 1)
Quarter: 2014Q2

REPORT INFORMATION
  Report Type: Spontaneous
  Country: US (occurrence: US)
  Receive Date: 20140616
  Receipt Date: 20140616
  Transmission Date: 20141212
  Serious: Yes (Other)
  Sender: FDA-Public Use
  Company Number: US-PFIZER INC-2014159652

PATIENT
  Age: 42 Year
  Sex: Female

DRUGS (8)
  1. GABAPENTIN [Suspect]
     Dosage: 600 MG EVERY 6 HOURS
  2. TRAMADOL HCL [Suspect]
     Dosage: 50 MG EVERY 8 HRS, PRN
  3. ZOLPIDEM TARTRATE [Suspect]
     Dosage: 5 MG, QHS
  4. DIAZEPAM [Suspect]
     Dosage: 5 MG, 2X/DAY
  5. TIZANIDINE [Suspect]
     Dosage: 4 MG EVERY 8 HOURS
  6. DIPHENHYDRAMINE [Suspect]
     Dosage: UNK
  7. HYDROMORPHONE [Suspect]
     Dosage: 8 MG EVERY 3 HOURS PRN
  8. BUTALBITAL, ACETAMINOPHEN + CAFFEINE [Suspect]
     Dosage: UNK

REACTIONS (1)
  - Dementia [Unknown]
